FAERS Safety Report 9939454 (Version 1)
Quarter: 2014Q1

REPORT INFORMATION
  Report Type: Report from Study
  Country: US (occurrence: US)
  Receive Date: 20140303
  Receipt Date: 20140303
  Transmission Date: 20141002
  Serious: No
  Sender: FDA-Public Use
  Company Number: US-ABBVIE-13P-163-1034463-00

PATIENT
  Age: 58 Year
  Sex: Female
  Weight: 90.8 kg

DRUGS (18)
  1. HUMIRA [Suspect]
     Indication: CROHN^S DISEASE
     Dates: start: 200811
  2. NEXIUM [Concomitant]
     Indication: GASTROOESOPHAGEAL REFLUX DISEASE
  3. LEVOTHYROXINE [Concomitant]
     Indication: HYPOTHYROIDISM
  4. LIALDA [Concomitant]
     Indication: CROHN^S DISEASE
  5. LEVSIN [Concomitant]
     Indication: CROHN^S DISEASE
  6. SIMVASTATIN [Concomitant]
     Indication: BLOOD CHOLESTEROL INCREASED
  7. LOSARTAN [Concomitant]
     Indication: HYPERTENSION
  8. REQUIP [Concomitant]
     Indication: RESTLESS LEGS SYNDROME
  9. FLUOXETINE [Concomitant]
     Indication: DEPRESSION
  10. ZOPIDEM CR [Concomitant]
     Indication: INSOMNIA
  11. NORCO [Concomitant]
     Indication: PAIN
  12. OXYCONTIN [Concomitant]
     Indication: PRODUCT USED FOR UNKNOWN INDICATION
  13. ONDANSETRON [Concomitant]
     Indication: NAUSEA
  14. TRIAMTERENE [Concomitant]
     Indication: HYPERTENSION
  15. FOLIC ACID [Concomitant]
     Indication: ARTHRITIS
  16. FOLIC ACID [Concomitant]
     Indication: CROHN^S DISEASE
  17. METHOTREXATE [Concomitant]
     Indication: CROHN^S DISEASE
  18. METHOTREXATE [Concomitant]
     Indication: ARTHRITIS

REACTIONS (4)
  - Aphonia [Recovered/Resolved]
  - Oropharyngeal pain [Not Recovered/Not Resolved]
  - Cough [Not Recovered/Not Resolved]
  - Sinusitis [Not Recovered/Not Resolved]
